FAERS Safety Report 13090854 (Version 1)
Quarter: 2017Q1

REPORT INFORMATION
  Report Type: Spontaneous
  Country: US (occurrence: US)
  Receive Date: 20170106
  Receipt Date: 20170106
  Transmission Date: 20170428
  Serious: No
  Sender: FDA-Public Use
  Company Number: US-ASTRAZENECA-2016SF37606

PATIENT
  Age: 46 Year
  Sex: Female
  Weight: 86.2 kg

DRUGS (1)
  1. SYMBICORT [Suspect]
     Active Substance: BUDESONIDE\FORMOTEROL FUMARATE DIHYDRATE
     Indication: ASTHMA
     Dosage: 160\4.5 MCG TWO TIMES A DAY
     Route: 055
     Dates: start: 20161121, end: 20161216

REACTIONS (5)
  - Oropharyngeal pain [Not Recovered/Not Resolved]
  - Vocal cord disorder [Unknown]
  - Dysphagia [Unknown]
  - Feeling abnormal [Unknown]
  - Dysphonia [Not Recovered/Not Resolved]

NARRATIVE: CASE EVENT DATE: 2016
